FAERS Safety Report 19179697 (Version 2)
Quarter: 2021Q4

REPORT INFORMATION
  Report Type: Spontaneous
  Country: US (occurrence: US)
  Receive Date: 20210426
  Receipt Date: 20211230
  Transmission Date: 20220303
  Serious: Yes (Hospitalization, Other)
  Sender: FDA-Public Use
  Company Number: US-TAKEDA-2021TUS024478

PATIENT
  Sex: Female
  Weight: 37 kg

DRUGS (7)
  1. ENTYVIO [Suspect]
     Active Substance: VEDOLIZUMAB
     Indication: Crohn^s disease
     Dosage: UNK
     Route: 042
  2. ENTYVIO [Suspect]
     Active Substance: VEDOLIZUMAB
     Dosage: UNK, Q6WEEKS
     Route: 042
  3. COVID-19 VACCINE NOS [Suspect]
     Active Substance: COVID-19 VACCINE NOS
     Indication: Product used for unknown indication
     Dosage: UNK
     Route: 065
     Dates: start: 20210808
  4. TACROLIMUS [Concomitant]
     Active Substance: TACROLIMUS
     Dosage: UNK
  5. PREDNISONE [Concomitant]
     Active Substance: PREDNISONE
     Dosage: 40 MILLIGRAM
  6. IRON [Concomitant]
     Active Substance: IRON
     Dosage: UNK
  7. COPPER [Concomitant]
     Active Substance: COPPER
     Dosage: UNK

REACTIONS (13)
  - Adverse event [Unknown]
  - Haemoglobin decreased [Unknown]
  - Dizziness [Unknown]
  - Tremor [Unknown]
  - Visual impairment [Unknown]
  - Decreased appetite [Unknown]
  - Dyspnoea [Unknown]
  - Feeling abnormal [Unknown]
  - Restlessness [Unknown]
  - Blood glucose increased [Unknown]
  - Drug level decreased [Unknown]
  - Fatigue [Unknown]
  - Off label use [Unknown]
